FAERS Safety Report 8186619-3 (Version None)
Quarter: 2012Q1

REPORT INFORMATION
  Report Type: 
  Country: None (occurrence: None)
  Receive Date: 20120306
  Receipt Date: 20120222
  Transmission Date: 20120608
  Serious: Yes (Hospitalization)
  Sender: FDA-Public Use
  Company Number: NL-MEDIMMUNE-MEDI-0014667

PATIENT
  Sex: Female
  Weight: 2.83 kg

DRUGS (1)
  1. SYNAGIS [Suspect]
     Indication: PREMATURE BABY
     Route: 030
     Dates: start: 20111221, end: 20111221

REACTIONS (2)
  - ABDOMINAL ADHESIONS [None]
  - GASTROINTESTINAL DISORDER [None]
